FAERS Safety Report 8198536 (Version 5)
Quarter: 2013Q3

REPORT INFORMATION
  Report Type: Spontaneous
  Country: BR (occurrence: BR)
  Receive Date: 20111025
  Receipt Date: 20130903
  Transmission Date: 20140515
  Serious: Yes (Other)
  Sender: FDA-Public Use
  Company Number: BR-ROCHE-1006711

PATIENT
  Sex: Female

DRUGS (7)
  1. XOLAIR [Suspect]
     Indication: PRODUCT USED FOR UNKNOWN INDICATION
     Route: 065
  2. FORASEQ (BRAZIL) [Concomitant]
     Dosage: 12/400 MCG.
     Route: 065
  3. ALVESCO [Concomitant]
     Route: 065
     Dates: start: 2012
  4. MONTELAR [Concomitant]
     Dosage: //2012
     Route: 065
  5. LOSARTAN [Concomitant]
     Route: 065
  6. OMEPRAZOLE [Concomitant]
     Route: 065
  7. FLUOXETINE [Concomitant]
     Route: 065

REACTIONS (4)
  - Lung infection [Recovered/Resolved]
  - Asthma [Recovered/Resolved]
  - Memory impairment [Recovered/Resolved]
  - Dyspnoea [Recovered/Resolved]
